FAERS Safety Report 8077401-6 (Version None)
Quarter: 2012Q1

REPORT INFORMATION
  Report Type: 
  Country: None (occurrence: None)
  Receive Date: 20120127
  Receipt Date: 20120118
  Transmission Date: 20120608
  Serious: Yes (Other)
  Sender: FDA-Public Use
  Company Number: US-ELI_LILLY_AND_COMPANY-US201201006509

PATIENT
  Sex: Male

DRUGS (3)
  1. HUMALOG MIX 75/25 [Suspect]
     Indication: DIABETES MELLITUS
     Dosage: 5 U, BID
     Dates: start: 20120117
  2. BYETTA [Concomitant]
  3. INSULIN [Concomitant]
     Dosage: UNK, UNKNOWN
     Dates: start: 20120116

REACTIONS (1)
  - BLOOD GLUCOSE INCREASED [None]
